FAERS Safety Report 16094644 (Version 4)
Quarter: 2019Q2

REPORT INFORMATION
  Report Type: Report from Study
  Country: US (occurrence: US)
  Receive Date: 20190320
  Receipt Date: 20190610
  Transmission Date: 20190711
  Serious: Yes (Other)
  Sender: FDA-Public Use
  Company Number: US-ROCHE-2280733

PATIENT
  Age: 42 Year
  Sex: Female
  Weight: 62.2 kg

DRUGS (3)
  1. OCREVUS [Suspect]
     Active Substance: OCRELIZUMAB
     Indication: RELAPSING-REMITTING MULTIPLE SCLEROSIS
     Route: 065
  2. PROVENTIL [Concomitant]
     Active Substance: ALBUTEROL
     Indication: ASTHMA
     Dosage: PRN ;ONGOING: YES
     Route: 055
     Dates: start: 1992
  3. OCREVUS [Suspect]
     Active Substance: OCRELIZUMAB
     Route: 065
     Dates: start: 201710

REACTIONS (6)
  - Menstrual disorder [Unknown]
  - Polymenorrhoea [Not Recovered/Not Resolved]
  - Suicidal ideation [Recovered/Resolved]
  - Breast tenderness [Recovered/Resolved]
  - Depression [Recovered/Resolved]
  - Oral herpes [Recovered/Resolved with Sequelae]

NARRATIVE: CASE EVENT DATE: 201710
